FAERS Safety Report 7243465-2 (Version None)
Quarter: 2011Q1

REPORT INFORMATION
  Report Type: 
  Country: None (occurrence: None)
  Receive Date: 20110119
  Receipt Date: 20110119
  Transmission Date: 20110831
  Serious: Yes (Hospitalization, Other)
  Sender: FDA-Public Use
  Company Number: None

PATIENT
  Sex: Female
  Weight: 77.1115 kg

DRUGS (1)
  1. AVELOX [Suspect]
     Indication: PNEUMONIA PRIMARY ATYPICAL
     Dosage: 1 PILL FOR 7 DAYS PO
     Route: 048
     Dates: start: 20110108, end: 20110115

REACTIONS (7)
  - PANIC REACTION [None]
  - PNEUMONIA [None]
  - EMOTIONAL DISORDER [None]
  - DEPRESSION [None]
  - PAIN [None]
  - HEART RATE INCREASED [None]
  - ANXIETY [None]
